FAERS Safety Report 14621703 (Version 1)
Quarter: 2018Q1

REPORT INFORMATION
  Report Type: Spontaneous
  Country: FR (occurrence: FR)
  Receive Date: 20180310
  Receipt Date: 20180310
  Transmission Date: 20180509
  Serious: Yes (Death, Congenital Anomaly)
  Sender: FDA-Public Use
  Company Number: FR-AUROBINDO-AUR-APL-2018-012778

PATIENT
  Age: 21 Week

DRUGS (1)
  1. PREDNISONE. [Suspect]
     Active Substance: PREDNISONE
     Indication: ANTINUCLEAR ANTIBODY POSITIVE
     Dosage: 0.3 MILLIGRAM/KILOGRAM, ONCE A DAY
     Route: 064

REACTIONS (2)
  - Congenital cytomegalovirus infection [Fatal]
  - Foetal exposure during pregnancy [Fatal]
